FAERS Safety Report 13602556 (Version 1)
Quarter: 2017Q2

REPORT INFORMATION
  Report Type: Spontaneous
  Country: IL (occurrence: IL)
  Receive Date: 20170601
  Receipt Date: 20170601
  Transmission Date: 20170830
  Serious: Yes (Death, Other)
  Sender: FDA-Public Use
  Company Number: IL-ASPEN PHARMA TRADING LIMITED US-AG-2017-003759

PATIENT
  Age: 45 Year
  Sex: Female

DRUGS (6)
  1. PREDNISONE. [Suspect]
     Active Substance: PREDNISONE
     Indication: BEHCET^S SYNDROME
     Route: 065
     Dates: start: 1998
  2. COLCHICINE. [Suspect]
     Active Substance: COLCHICINE
     Indication: BEHCET^S SYNDROME
     Route: 065
     Dates: start: 1998, end: 20030930
  3. PREDNISONE. [Suspect]
     Active Substance: PREDNISONE
     Dosage: DOSE INCREASED
     Route: 065
     Dates: start: 20031103
  4. CHLORAMBUCIL [Suspect]
     Active Substance: CHLORAMBUCIL
     Indication: BEHCET^S SYNDROME
     Route: 065
     Dates: start: 1998, end: 20030930
  5. CHLORAMBUCIL [Suspect]
     Active Substance: CHLORAMBUCIL
     Route: 065
  6. CORTICOSTEROIDS [Suspect]
     Active Substance: CORTICOSTEROID NOS
     Indication: BEHCET^S SYNDROME
     Dosage: HIGH DOSE
     Route: 065

REACTIONS (5)
  - Off label use [Unknown]
  - Pancytopenia [Not Recovered/Not Resolved]
  - Myelodysplastic syndrome transformation [Not Recovered/Not Resolved]
  - Multiple organ dysfunction syndrome [Fatal]
  - Refractory anaemia with an excess of blasts [Not Recovered/Not Resolved]
